FAERS Safety Report 8399911-4 (Version None)
Quarter: 2012Q2

REPORT INFORMATION
  Report Type: 
  Country: None (occurrence: None)
  Receive Date: 20120531
  Receipt Date: 20120518
  Transmission Date: 20120825
  Serious: Yes (Hospitalization, Other)
  Sender: FDA-Public Use
  Company Number: US-ELI_LILLY_AND_COMPANY-US201103004090

PATIENT
  Sex: Female

DRUGS (13)
  1. PREDNISONE TAB [Concomitant]
     Dosage: 2.5 MG, UNK
  2. BENICAR [Concomitant]
     Indication: BLOOD PRESSURE
  3. MULTI-VITAMIN [Concomitant]
  4. FORTEO [Suspect]
     Dosage: 20 UG, QD
  5. FORTEO [Suspect]
     Dosage: 20 UG, QD
     Route: 065
  6. CALCIUM [Concomitant]
     Dosage: 600 MG, UNK
  7. ARAVA [Concomitant]
  8. FORTEO [Suspect]
     Indication: OSTEOPOROSIS
     Dosage: 20 UG, QD
     Route: 065
     Dates: start: 20110201
  9. FORTEO [Suspect]
     Dosage: 20 UG, QD
  10. FORTEO [Suspect]
     Dosage: 20 UG, QD
  11. ANTACIDS [Concomitant]
  12. STOOL SOFTENER [Concomitant]
  13. VICODIN [Concomitant]
     Indication: PAIN
     Dosage: 500 MG, UNK

REACTIONS (12)
  - PNEUMONIA [None]
  - OESOPHAGEAL STENOSIS [None]
  - VOMITING [None]
  - RIB FRACTURE [None]
  - INFLUENZA [None]
  - FALL [None]
  - ABDOMINAL DISCOMFORT [None]
  - MALAISE [None]
  - ASTHENIA [None]
  - INJECTION SITE PAIN [None]
  - MUSCLE SPASMS [None]
  - NAUSEA [None]
